FAERS Safety Report 26097720 (Version 1)
Quarter: 2025Q4

REPORT INFORMATION
  Report Type: Spontaneous
  Country: JP (occurrence: JP)
  Receive Date: 20251127
  Receipt Date: 20251127
  Transmission Date: 20260118
  Serious: Yes (Death, Other)
  Sender: MERCK SHARP & DOHME LLC
  Company Number: JP-009507513-2353311

PATIENT
  Age: 77 Year
  Sex: Female

DRUGS (4)
  1. KEYTRUDA [Suspect]
     Active Substance: PEMBROLIZUMAB
     Indication: Cervix carcinoma stage IV
     Route: 041
     Dates: start: 202509, end: 202510
  2. BEVACIZUMAB [Suspect]
     Active Substance: BEVACIZUMAB
     Indication: Cervix carcinoma stage IV
     Route: 065
     Dates: start: 202508, end: 202510
  3. PACLITAXEL [Suspect]
     Active Substance: PACLITAXEL
     Indication: Cervix carcinoma stage IV
     Route: 065
     Dates: start: 202508, end: 202510
  4. CARBOPLATIN [Suspect]
     Active Substance: CARBOPLATIN
     Indication: Cervix carcinoma stage IV
     Route: 065
     Dates: start: 202509, end: 202510

REACTIONS (3)
  - Death [Fatal]
  - Encephalitis [Unknown]
  - Thyroid disorder [Recovered/Resolved]

NARRATIVE: CASE EVENT DATE: 20250101
